FAERS Safety Report 23158612 (Version 1)
Quarter: 2023Q4

REPORT INFORMATION
  Report Type: Spontaneous
  Country: US (occurrence: US)
  Receive Date: 20231108
  Receipt Date: 20231108
  Transmission Date: 20240110
  Serious: Yes (Other)
  Sender: FDA-Public Use
  Company Number: US-SA-SAC20231106000230

PATIENT
  Sex: Female

DRUGS (2)
  1. DUPIXENT [Suspect]
     Active Substance: DUPILUMAB
     Indication: Neurodermatitis
     Dosage: 300 MG, QOW
     Route: 058
  2. CYCLOBENZAPRINE [Suspect]
     Active Substance: CYCLOBENZAPRINE
     Indication: Muscle tone disorder

REACTIONS (8)
  - Systemic lupus erythematosus [Unknown]
  - Suicidal ideation [Unknown]
  - Depression [Unknown]
  - Decreased appetite [Unknown]
  - Muscle tone disorder [Unknown]
  - Fatigue [Unknown]
  - Asthenia [Unknown]
  - Blood iron decreased [Unknown]
